FAERS Safety Report 21206263 (Version 2)
Quarter: 2022Q3

REPORT INFORMATION
  Report Type: Report from Study
  Country: CA (occurrence: CA)
  Receive Date: 20220812
  Receipt Date: 20220817
  Transmission Date: 20221027
  Serious: Yes (Other)
  Sender: FDA-Public Use
  Company Number: CA-LEO Pharma-344709

PATIENT
  Age: 70 Year
  Sex: Female

DRUGS (25)
  1. DEVICE [Suspect]
     Active Substance: DEVICE
     Indication: Dermatitis atopic
  2. ADBRY [Suspect]
     Active Substance: TRALOKINUMAB-LDRM
     Indication: Dermatitis atopic
     Dosage: DOSAGE : 600MG SC LOADING DOSE
     Route: 058
     Dates: start: 20220708, end: 20220708
  3. ADBRY [Suspect]
     Active Substance: TRALOKINUMAB-LDRM
     Indication: Dermatitis atopic
     Dosage: DOSAGE : 600MG SC LOADING DOSE
     Route: 058
     Dates: start: 20220708, end: 20220708
  4. ADBRY [Suspect]
     Active Substance: TRALOKINUMAB-LDRM
     Indication: Dermatitis atopic
     Dosage: DOSAGE : 600MG SC LOADING DOSE
     Route: 058
     Dates: start: 20220708, end: 20220708
  5. ADBRY [Suspect]
     Active Substance: TRALOKINUMAB-LDRM
     Indication: Dermatitis atopic
     Dosage: DOSAGE : 600MG SC LOADING DOSE
     Route: 058
     Dates: start: 20220708, end: 20220708
  6. ADBRY [Suspect]
     Active Substance: TRALOKINUMAB-LDRM
     Indication: Dermatitis atopic
     Dosage: DOSAGE : 600MG SC LOADING DOSE
     Route: 058
     Dates: start: 20220708, end: 20220708
  7. ADBRY [Suspect]
     Active Substance: TRALOKINUMAB-LDRM
     Indication: Dermatitis atopic
     Dosage: DOSAGE : 600MG SC LOADING DOSE
     Route: 058
     Dates: start: 20220708, end: 20220708
  8. ADBRY [Suspect]
     Active Substance: TRALOKINUMAB-LDRM
     Indication: Dermatitis atopic
     Dosage: DOSAGE: 300MG SC Q2WEEKS 150MG/ML PFS
     Route: 058
  9. ADBRY [Suspect]
     Active Substance: TRALOKINUMAB-LDRM
     Indication: Dermatitis atopic
     Dosage: DOSAGE: 300MG SC Q2WEEKS 150MG/ML PFS
     Route: 058
  10. ADBRY [Suspect]
     Active Substance: TRALOKINUMAB-LDRM
     Indication: Dermatitis atopic
     Dosage: DOSAGE: 300MG SC Q2WEEKS 150MG/ML PFS
     Route: 058
  11. ADBRY [Suspect]
     Active Substance: TRALOKINUMAB-LDRM
     Indication: Dermatitis atopic
     Dosage: DOSAGE: 300MG SC Q2WEEKS 150MG/ML PFS
     Route: 058
  12. ADBRY [Suspect]
     Active Substance: TRALOKINUMAB-LDRM
     Indication: Dermatitis atopic
     Dosage: DOSAGE: 300MG SC Q2WEEKS 150MG/ML PFS
     Route: 058
  13. ADBRY [Suspect]
     Active Substance: TRALOKINUMAB-LDRM
     Indication: Dermatitis atopic
     Dosage: DOSAGE: 300MG SC Q2WEEKS 150MG/ML PFS
     Route: 058
  14. ADBRY [Suspect]
     Active Substance: TRALOKINUMAB-LDRM
     Indication: Dermatitis atopic
     Dosage: DOSAGE : 600MG SC LOADING DOSE
     Route: 058
     Dates: start: 20220708, end: 20220708
  15. ADBRY [Suspect]
     Active Substance: TRALOKINUMAB-LDRM
     Indication: Dermatitis atopic
     Dosage: DOSAGE : 600MG SC LOADING DOSE
     Route: 058
     Dates: start: 20220708, end: 20220708
  16. ADBRY [Suspect]
     Active Substance: TRALOKINUMAB-LDRM
     Indication: Dermatitis atopic
     Dosage: DOSAGE : 600MG SC LOADING DOSE
     Route: 058
     Dates: start: 20220708, end: 20220708
  17. ADBRY [Suspect]
     Active Substance: TRALOKINUMAB-LDRM
     Indication: Dermatitis atopic
     Dosage: DOSAGE : 600MG SC LOADING DOSE
     Route: 058
     Dates: start: 20220708, end: 20220708
  18. ADBRY [Suspect]
     Active Substance: TRALOKINUMAB-LDRM
     Indication: Dermatitis atopic
     Dosage: DOSAGE : 600MG SC LOADING DOSE
     Route: 058
     Dates: start: 20220708, end: 20220708
  19. ADBRY [Suspect]
     Active Substance: TRALOKINUMAB-LDRM
     Indication: Dermatitis atopic
     Dosage: DOSAGE : 600MG SC LOADING DOSE
     Route: 058
     Dates: start: 20220708, end: 20220708
  20. ADBRY [Suspect]
     Active Substance: TRALOKINUMAB-LDRM
     Indication: Dermatitis atopic
     Dosage: DOSAGE: 300MG SC Q2WEEKS 150MG/ML PFS
     Route: 058
  21. ADBRY [Suspect]
     Active Substance: TRALOKINUMAB-LDRM
     Indication: Dermatitis atopic
     Dosage: DOSAGE: 300MG SC Q2WEEKS 150MG/ML PFS
     Route: 058
  22. ADBRY [Suspect]
     Active Substance: TRALOKINUMAB-LDRM
     Indication: Dermatitis atopic
     Dosage: DOSAGE: 300MG SC Q2WEEKS 150MG/ML PFS
     Route: 058
  23. ADBRY [Suspect]
     Active Substance: TRALOKINUMAB-LDRM
     Indication: Dermatitis atopic
     Dosage: DOSAGE: 300MG SC Q2WEEKS 150MG/ML PFS
     Route: 058
  24. ADBRY [Suspect]
     Active Substance: TRALOKINUMAB-LDRM
     Indication: Dermatitis atopic
     Dosage: DOSAGE: 300MG SC Q2WEEKS 150MG/ML PFS
     Route: 058
  25. ADBRY [Suspect]
     Active Substance: TRALOKINUMAB-LDRM
     Indication: Dermatitis atopic
     Dosage: DOSAGE: 300MG SC Q2WEEKS 150MG/ML PFS
     Route: 058

REACTIONS (8)
  - Injection site pain [Unknown]
  - Injection site joint erythema [Unknown]
  - Chest pain [Unknown]
  - Dyspnoea [Unknown]
  - Dyspnoea [Unknown]
  - Eye pain [Not Recovered/Not Resolved]
  - Injection site joint erythema [Unknown]
  - Injection site pain [Unknown]

NARRATIVE: CASE EVENT DATE: 20220701
